FAERS Safety Report 7018649-9 (Version None)
Quarter: 2010Q3

REPORT INFORMATION
  Report Type: 
  Country: None (occurrence: None)
  Receive Date: 20100928
  Receipt Date: 20100922
  Transmission Date: 20110219
  Serious: Yes (Disabling)
  Sender: FDA-Public Use
  Company Number: SE-MERCK-1008SWE00037

PATIENT
  Age: 85 Year
  Sex: Female

DRUGS (7)
  1. FOSAMAX [Suspect]
     Route: 048
     Dates: start: 20050601, end: 20090201
  2. ASPIRIN [Concomitant]
     Route: 065
  3. CALCIUM (UNSPECIFIED) [Concomitant]
     Route: 065
  4. ENALAPRIL MALEATE [Concomitant]
     Route: 065
  5. LEVODOPA [Concomitant]
     Route: 065
  6. SELEGILINE [Concomitant]
     Route: 065
  7. TRAMADOL HYDROCHLORIDE [Concomitant]
     Route: 065

REACTIONS (8)
  - AGEUSIA [None]
  - DYSARTHRIA [None]
  - EATING DISORDER [None]
  - MOUTH ULCERATION [None]
  - ORAL DISCOMFORT [None]
  - ORAL PAIN [None]
  - TONGUE ULCERATION [None]
  - WEIGHT DECREASED [None]
